FAERS Safety Report 4906342-5 (Version None)
Quarter: 2006Q1

REPORT INFORMATION
  Report Type: 
  Country: None (occurrence: None)
  Receive Date: 20060207
  Receipt Date: 20060118
  Transmission Date: 20060701
  Serious: Yes (Death, Hospitalization, Other)
  Sender: FDA-Public Use
  Company Number: JP_051007769

PATIENT
  Age: 53 Year
  Sex: Male
  Weight: 60 kg

DRUGS (8)
  1. GEMZAR [Suspect]
     Indication: PANCREATIC CARCINOMA STAGE IV
     Dosage: 1000 MG/M2, OTHER, INTRAVENOUS
     Route: 042
     Dates: start: 20050801, end: 20050801
  2. GEMZAR [Suspect]
     Indication: PANCREATIC CARCINOMA STAGE IV
     Dosage: 1000 MG/M2, OTHER, INTRAVENOUS
     Route: 042
     Dates: start: 20050915, end: 20050915
  3. GEMZAR [Suspect]
     Indication: PANCREATIC CARCINOMA STAGE IV
     Dosage: 1000 MG/M2, OTHER, INTRAVENOUS
     Route: 042
     Dates: start: 20041019
  4. VEEN-F (CALCIUM CHLORIDE ANHYDROUS, MAGNESIUM CHLORIDE ANHYDROUS, POTA [Concomitant]
  5. ADONA (CARBAZOCHROME SODIUM SULFONATE) [Concomitant]
  6. TRANSAMIN (TRANEXAMIC ACID) AMPOULE [Concomitant]
  7. LOXONIN (LOXOPROFEN SODIUM) [Concomitant]
  8. INDACIN (INDOMETACIN) SUPPOSITORY [Concomitant]

REACTIONS (18)
  - ASCITES [None]
  - BLOOD PRESSURE INADEQUATELY CONTROLLED [None]
  - BONE MARROW FAILURE [None]
  - CARDIAC FAILURE [None]
  - CARDIOMEGALY [None]
  - CONSTIPATION [None]
  - HEPATIC CONGESTION [None]
  - INSOMNIA [None]
  - PANCREATIC DISORDER [None]
  - PLEURAL EFFUSION [None]
  - PNEUMONITIS [None]
  - PULMONARY ALVEOLAR HAEMORRHAGE [None]
  - PULMONARY CONGESTION [None]
  - RENAL DISORDER [None]
  - SPLEEN CONGESTION [None]
  - THERAPY NON-RESPONDER [None]
  - TREATMENT NONCOMPLIANCE [None]
  - VOMITING [None]
